FAERS Safety Report 4610180-0 (Version None)
Quarter: 2005Q1

REPORT INFORMATION
  Report Type: 
  Country: None (occurrence: None)
  Receive Date: 20050316
  Receipt Date: 20050304
  Transmission Date: 20050727
  Serious: Yes (Hospitalization)
  Sender: FDA-Public Use
  Company Number: IE-JNJFOC-20050301357

PATIENT
  Age: 82 Year
  Sex: Male

DRUGS (7)
  1. DAKTARIN [Suspect]
     Indication: DRUG USE FOR UNKNOWN INDICATION
     Route: 049
  2. WARFARIN [Interacting]
     Indication: ATRIAL FIBRILLATION
     Route: 065
  3. DIGOXIN [Concomitant]
     Route: 065
  4. TIOTROPIUM [Concomitant]
     Route: 065
  5. PAROXETINE HCL [Concomitant]
     Route: 065
  6. BENDROFLUMETHIAZIDE [Concomitant]
     Route: 065
  7. LANSOPRAZOLE [Concomitant]
     Route: 065

REACTIONS (2)
  - DRUG INTERACTION [None]
  - INTERNATIONAL NORMALISED RATIO INCREASED [None]
